FAERS Safety Report 12440863 (Version 1)
Quarter: 2016Q2

REPORT INFORMATION
  Report Type: Spontaneous
  Country: JP (occurrence: JP)
  Receive Date: 20160607
  Receipt Date: 20160607
  Transmission Date: 20160815
  Serious: Yes (Other)
  Sender: FDA-Public Use
  Company Number: JP-009507513-1606JPN002544

PATIENT
  Age: 48 Year
  Sex: Male

DRUGS (1)
  1. NASONEX [Suspect]
     Active Substance: MOMETASONE FUROATE
     Indication: SEASONAL ALLERGY
     Dosage: DAILY DOSAGE UNKNOWN
     Route: 045
     Dates: start: 201605, end: 201605

REACTIONS (5)
  - Pulmonary pain [Unknown]
  - Pruritus [Unknown]
  - Atopy [Unknown]
  - Eczema [Unknown]
  - Angina pectoris [Unknown]

NARRATIVE: CASE EVENT DATE: 201605
